FAERS Safety Report 7600558-5 (Version None)
Quarter: 2011Q3

REPORT INFORMATION
  Report Type: 
  Country: None (occurrence: None)
  Receive Date: 20110711
  Receipt Date: 20110701
  Transmission Date: 20111222
  Serious: Yes (Hospitalization)
  Sender: FDA-Public Use
  Company Number: NO-ROCHE-787199

PATIENT
  Sex: Female

DRUGS (3)
  1. METHOTREXATE [Concomitant]
     Route: 048
     Dates: start: 19970101
  2. PREDNISOLONE [Concomitant]
     Route: 048
     Dates: start: 19970101
  3. ACTEMRA [Suspect]
     Route: 041
     Dates: start: 20080201

REACTIONS (1)
  - THROMBOSIS [None]
